FAERS Safety Report 19996296 (Version 1)
Quarter: 2021Q4

REPORT INFORMATION
  Report Type: Spontaneous
  Country: US (occurrence: US)
  Receive Date: 20211026
  Receipt Date: 20211026
  Transmission Date: 20220303
  Serious: Yes (Other)
  Sender: FDA-Public Use
  Company Number: None

PATIENT
  Age: 17 Year
  Sex: Male
  Weight: 83.16 kg

DRUGS (1)
  1. MIRTAZAPINE [Suspect]
     Active Substance: MIRTAZAPINE
     Route: 048
     Dates: end: 20210604

REACTIONS (3)
  - Neutrophil count decreased [None]
  - Gynaecomastia [None]
  - Therapy cessation [None]

NARRATIVE: CASE EVENT DATE: 20210603
